FAERS Safety Report 24463570 (Version 1)
Quarter: 2024Q4

REPORT INFORMATION
  Report Type: Report from Study
  Country: US (occurrence: US)
  Receive Date: 20241018
  Receipt Date: 20241018
  Transmission Date: 20250115
  Serious: No
  Sender: ROCHE
  Company Number: US-ROCHE-3206615

PATIENT
  Age: 68 Year
  Sex: Female

DRUGS (6)
  1. XOLAIR [Suspect]
     Active Substance: OMALIZUMAB
     Indication: Idiopathic urticaria
     Dosage: END DATE: 04-MAR-2025?150 MG AUTOINJECTOR, EVERY 10-12 WEEKS
     Route: 058
  2. XOLAIR [Suspect]
     Active Substance: OMALIZUMAB
     Indication: Urticaria
  3. XOLAIR [Suspect]
     Active Substance: OMALIZUMAB
     Indication: Idiopathic urticaria
     Route: 058
  4. XOLAIR [Suspect]
     Active Substance: OMALIZUMAB
     Indication: Urticaria
  5. AUVI-Q [Concomitant]
     Active Substance: EPINEPHRINE
  6. OLOPATADINE [Concomitant]
     Active Substance: OLOPATADINE

REACTIONS (2)
  - Off label use [Unknown]
  - No adverse event [Unknown]
